FAERS Safety Report 6443414-0 (Version None)
Quarter: 2009Q4

REPORT INFORMATION
  Report Type: 
  Country: None (occurrence: None)
  Receive Date: 20091117
  Receipt Date: 20091109
  Transmission Date: 20100525
  Serious: Yes (Other)
  Sender: FDA-Public Use
  Company Number: JP-PFIZER INC-2009298453

PATIENT
  Sex: Male

DRUGS (2)
  1. ATARAX [Suspect]
     Route: 030
     Dates: start: 20070701
  2. PENTAZOCINE LACTATE [Concomitant]
     Route: 030

REACTIONS (3)
  - INJECTION SITE ANAESTHESIA [None]
  - INJECTION SITE PAIN [None]
  - INJECTION SITE REACTION [None]
